FAERS Safety Report 7712021-1 (Version None)
Quarter: 2011Q3

REPORT INFORMATION
  Report Type: 
  Country: None (occurrence: None)
  Receive Date: 20110826
  Receipt Date: 20110815
  Transmission Date: 20111222
  Serious: Yes (Hospitalization)
  Sender: FDA-Public Use
  Company Number: US-UCBSA-039212

PATIENT
  Age: 26 Year
  Sex: Male
  Weight: 96 kg

DRUGS (3)
  1. OMEPRAZOLE [Concomitant]
     Indication: DYSPEPSIA
     Route: 048
     Dates: start: 20090101
  2. LAMICTAL [Concomitant]
     Indication: EPILEPSY
     Route: 048
     Dates: start: 20080101
  3. VIMPAT [Suspect]
     Indication: EPILEPSY
     Route: 048
     Dates: start: 20090109

REACTIONS (2)
  - EPILEPSY [None]
  - INCORRECT DOSE ADMINISTERED [None]
